FAERS Safety Report 6845150-5 (Version None)
Quarter: 2010Q3

REPORT INFORMATION
  Report Type: 
  Country: None (occurrence: None)
  Receive Date: 20100715
  Receipt Date: 20070813
  Transmission Date: 20110219
  Serious: No
  Sender: FDA-Public Use
  Company Number: US-PFIZER INC-2007068591

PATIENT
  Sex: Male

DRUGS (2)
  1. CHANTIX [Suspect]
     Indication: SMOKING CESSATION THERAPY
     Dates: start: 20060101, end: 20060101
  2. ANTIGLAUCOMA PREPARATIONS AND MIOTICS [Concomitant]
     Indication: GLAUCOMA
     Route: 047

REACTIONS (3)
  - DEPRESSION [None]
  - FEELING ABNORMAL [None]
  - MALAISE [None]
